FAERS Safety Report 6810633-0 (Version None)
Quarter: 2010Q2

REPORT INFORMATION
  Report Type: 
  Country: None (occurrence: None)
  Receive Date: 20100625
  Receipt Date: 20100621
  Transmission Date: 20101027
  Serious: Yes (Other)
  Sender: FDA-Public Use
  Company Number: A0866282A

PATIENT
  Sex: Male

DRUGS (2)
  1. DIPHENHYDRAMINE HYDROCHLORIDE CAP [Suspect]
     Indication: DRUG USE FOR UNKNOWN INDICATION
     Dosage: ORAL
     Route: 048
     Dates: start: 20100621, end: 20100621
  2. ETHANOL (FORMULATION UNKNOWN) (ALCOHOL) [Suspect]
     Indication: DRUG USE FOR UNKNOWN INDICATION

REACTIONS (2)
  - ALCOHOL USE [None]
  - INTENTIONAL OVERDOSE [None]
